FAERS Safety Report 7410384-8 (Version None)
Quarter: 2011Q2

REPORT INFORMATION
  Report Type: 
  Country: None (occurrence: None)
  Receive Date: 20110412
  Receipt Date: 20110330
  Transmission Date: 20111010
  Serious: Yes (Hospitalization)
  Sender: FDA-Public Use
  Company Number: JP-AMGEN-KDC437219

PATIENT
  Age: 75 Year
  Sex: Female
  Weight: 42 kg

DRUGS (4)
  1. PANITUMUMAB [Suspect]
     Indication: COLORECTAL CANCER
     Dosage: 7 MG/KG, Q2WK
     Route: 041
     Dates: start: 20100622, end: 20100706
  2. TAKEPRON [Concomitant]
     Route: 048
  3. PANITUMUMAB [Suspect]
     Dosage: 6 MG/KG, Q2WK
     Route: 041
     Dates: start: 20100720
  4. IANSOPRAZOLE [Concomitant]
     Dosage: UNK UNK, UNK
     Route: 048

REACTIONS (2)
  - THROMBOTIC STROKE [None]
  - HYPOMAGNESAEMIA [None]
